FAERS Safety Report 17601424 (Version 1)
Quarter: 2020Q1

REPORT INFORMATION
  Report Type: Spontaneous
  Country: US (occurrence: US)
  Receive Date: 20200330
  Receipt Date: 20200330
  Transmission Date: 20200409
  Serious: No
  Sender: FDA-Public Use
  Company Number: US-GALDERMA-US19067635

PATIENT
  Age: 66 Year
  Sex: Male

DRUGS (7)
  1. DIFFERIN GEL [Suspect]
     Active Substance: ADAPALENE
     Indication: CONTUSION
     Dosage: 0.1%
     Route: 061
     Dates: start: 20191021
  2. GLICLAZIDE [Concomitant]
     Active Substance: GLICLAZIDE
     Indication: TYPE 2 DIABETES MELLITUS
     Route: 065
  3. ATORVASTATIN [Concomitant]
     Active Substance: ATORVASTATIN
     Indication: TYPE 2 DIABETES MELLITUS
     Route: 065
  4. METFORMIN [Concomitant]
     Active Substance: METFORMIN HYDROCHLORIDE
     Indication: TYPE 2 DIABETES MELLITUS
     Route: 065
  5. METOPROLO [Concomitant]
     Active Substance: METOPROLOL
     Indication: TYPE 2 DIABETES MELLITUS
     Route: 065
  6. RAMIPRIL. [Concomitant]
     Active Substance: RAMIPRIL
     Indication: TYPE 2 DIABETES MELLITUS
     Route: 065
  7. VICTOZA [Concomitant]
     Active Substance: LIRAGLUTIDE
     Indication: TYPE 2 DIABETES MELLITUS
     Route: 065

REACTIONS (5)
  - Off label use [Recovered/Resolved]
  - Drug effective for unapproved indication [Recovered/Resolved]
  - Intentional overdose [Recovered/Resolved]
  - Skin tightness [Unknown]
  - Intentional product use issue [Recovered/Resolved]

NARRATIVE: CASE EVENT DATE: 2019
